FAERS Safety Report 15483143 (Version 3)
Quarter: 2018Q4

REPORT INFORMATION
  Report Type: Spontaneous
  Country: US (occurrence: US)
  Receive Date: 20181010
  Receipt Date: 20181126
  Transmission Date: 20190205
  Serious: No
  Sender: FDA-Public Use
  Company Number: US-PFIZER INC-2018405954

PATIENT
  Age: 75 Year
  Sex: Female
  Weight: 88 kg

DRUGS (5)
  1. ESTRING [Suspect]
     Active Substance: ESTRADIOL
     Indication: URINARY TRACT INFECTION
     Dosage: UNK
     Dates: start: 20180928
  2. LOSARTAN. [Concomitant]
     Active Substance: LOSARTAN
     Indication: HYPERTENSION
     Dosage: 50 MG, 1X/DAY
     Route: 048
  3. ESTRING [Suspect]
     Active Substance: ESTRADIOL
     Indication: MENOPAUSAL SYMPTOMS
     Dosage: UNK
  4. PRADAXA [Concomitant]
     Active Substance: DABIGATRAN ETEXILATE MESYLATE
     Indication: COAGULOPATHY
     Dosage: 150 MG, 2X/DAY
     Route: 048
  5. LASIX [FUROSEMIDE SODIUM] [Concomitant]
     Indication: FLUID RETENTION
     Dosage: 20 MG, 2X/DAY
     Route: 048

REACTIONS (6)
  - Product physical issue [Unknown]
  - Therapeutic response unexpected [Unknown]
  - Vulvovaginal discomfort [Unknown]
  - Overweight [Unknown]
  - Poor quality product administered [Unknown]
  - Vaginal discharge [Recovered/Resolved]

NARRATIVE: CASE EVENT DATE: 20180928
